FAERS Safety Report 9561592 (Version 1)
Quarter: 2013Q3

REPORT INFORMATION
  Report Type: Spontaneous
  Country: US (occurrence: US)
  Receive Date: 20130927
  Receipt Date: 20130927
  Transmission Date: 20140515
  Serious: No
  Sender: FDA-Public Use
  Company Number: US-BIOGENIDEC-2013BI061504

PATIENT
  Sex: Female

DRUGS (1)
  1. TECFIDERA [Suspect]
     Indication: MULTIPLE SCLEROSIS

REACTIONS (3)
  - Nasopharyngitis [Unknown]
  - Hepatic enzyme abnormal [Unknown]
  - Gastroenteritis viral [Unknown]
